FAERS Safety Report 8587757-3 (Version None)
Quarter: 2012Q3

REPORT INFORMATION
  Report Type: 
  Country: None (occurrence: None)
  Receive Date: 20120813
  Receipt Date: 20120807
  Transmission Date: 20120928
  Serious: Yes (Other)
  Sender: FDA-Public Use
  Company Number: CA-AMGEN-CANSP2012049594

PATIENT
  Age: 35 Year
  Sex: Female
  Weight: 50 kg

DRUGS (8)
  1. EPREX [Suspect]
     Indication: PRODUCT USED FOR UNKNOWN INDICATION
     Dosage: 4000 UNIT, 3 TIMES/WK
     Route: 042
  2. RABEPRAZOLE SODIUM [Concomitant]
  3. METROCREAM [Concomitant]
  4. ARANESP [Suspect]
     Indication: PRODUCT USED FOR UNKNOWN INDICATION
     Dosage: 30 MUG, 2 TIMES/WK
     Route: 042
  5. DICLOFENAC [Concomitant]
  6. MULTI-VITAMINS [Concomitant]
  7. PREDNISONE TAB [Concomitant]
  8. VENOFER [Concomitant]

REACTIONS (4)
  - PAIN [None]
  - VOMITING [None]
  - HEADACHE [None]
  - NAUSEA [None]
